FAERS Safety Report 8283726-1 (Version None)
Quarter: 2012Q2

REPORT INFORMATION
  Report Type: 
  Country: None (occurrence: None)
  Receive Date: 20120413
  Receipt Date: 20110329
  Transmission Date: 20120825
  Serious: No
  Sender: FDA-Public Use
  Company Number: US-ASTRAZENECA-2011SE18114

PATIENT
  Age: 51 Year
  Sex: Female

DRUGS (1)
  1. NEXIUM [Suspect]
     Route: 048

REACTIONS (12)
  - PYREXIA [None]
  - NAUSEA [None]
  - MIGRAINE [None]
  - DRUG DOSE OMISSION [None]
  - IMPAIRED GASTRIC EMPTYING [None]
  - MALAISE [None]
  - VOMITING [None]
  - DIARRHOEA [None]
  - FUNCTIONAL GASTROINTESTINAL DISORDER [None]
  - VIRAL INFECTION [None]
  - PNEUMONIA [None]
  - ABDOMINAL PAIN [None]
